FAERS Safety Report 12168391 (Version 1)
Quarter: 2016Q1

REPORT INFORMATION
  Report Type: Spontaneous
  Country: US (occurrence: US)
  Receive Date: 20160310
  Receipt Date: 20160310
  Transmission Date: 20160526
  Serious: Yes (Other)
  Sender: FDA-Public Use
  Company Number: US-ASTRAZENECA-2016SE26109

PATIENT
  Sex: Male

DRUGS (2)
  1. NEXIUM 24HR [Suspect]
     Active Substance: ESOMEPRAZOLE MAGNESIUM
     Route: 048
  2. VALIUM [Interacting]
     Active Substance: DIAZEPAM
     Route: 048

REACTIONS (3)
  - Dizziness [Unknown]
  - Barrett^s oesophagus [Unknown]
  - Drug interaction [Unknown]
